FAERS Safety Report 7423927-5 (Version None)
Quarter: 2011Q2

REPORT INFORMATION
  Report Type: 
  Country: None (occurrence: None)
  Receive Date: 20110419
  Receipt Date: 20110412
  Transmission Date: 20111010
  Serious: Yes (Hospitalization)
  Sender: FDA-Public Use
  Company Number: A0903032A

PATIENT
  Sex: Male

DRUGS (1)
  1. AVANDAMET [Suspect]
     Indication: DIABETES MELLITUS
     Route: 048
     Dates: start: 20030502, end: 20090101

REACTIONS (17)
  - EMOTIONAL DISTRESS [None]
  - CARDIOMYOPATHY [None]
  - PERIPHERAL VASCULAR DISORDER [None]
  - CONVULSION [None]
  - DEEP VEIN THROMBOSIS [None]
  - HYPERLIPIDAEMIA [None]
  - PAIN [None]
  - ANHEDONIA [None]
  - HYPERTENSION [None]
  - CORONARY ARTERY DISEASE [None]
  - ANAEMIA OF CHRONIC DISEASE [None]
  - CEREBRAL INFARCTION [None]
  - ACUTE MYOCARDIAL INFARCTION [None]
  - INJURY [None]
  - ECONOMIC PROBLEM [None]
  - TREATMENT NONCOMPLIANCE [None]
  - FEAR [None]
